FAERS Safety Report 20742157 (Version 2)
Quarter: 2022Q3

REPORT INFORMATION
  Report Type: Report from Study
  Country: US (occurrence: US)
  Receive Date: 20220423
  Receipt Date: 20220702
  Transmission Date: 20221027
  Serious: Yes (Hospitalization)
  Sender: FDA-Public Use
  Company Number: US-BRISTOL-MYERS SQUIBB COMPANY-2022-020260

PATIENT
  Age: 67 Year
  Sex: Male
  Weight: 94.8 kg

DRUGS (2)
  1. IPILIMUMAB [Suspect]
     Active Substance: IPILIMUMAB
     Indication: Metastatic renal cell carcinoma
     Dosage: 1 MG/KG IV ON DAY 1
     Route: 042
     Dates: start: 20220111, end: 20220201
  2. NIVOLUMAB [Suspect]
     Active Substance: NIVOLUMAB
     Indication: Metastatic renal cell carcinoma
     Dosage: 3 MG/KG IV ON DAY.
     Route: 041
     Dates: start: 20220111, end: 20220201

REACTIONS (1)
  - Hypotension [Recovered/Resolved]

NARRATIVE: CASE EVENT DATE: 20220326
